FAERS Safety Report 24794787 (Version 1)
Quarter: 2024Q4

REPORT INFORMATION
  Report Type: Spontaneous
  Country: US (occurrence: None)
  Receive Date: 20241231
  Receipt Date: 20241231
  Transmission Date: 20250115
  Serious: Yes (Hospitalization)
  Sender: Public
  Company Number: None

PATIENT
  Age: 89 Year
  Sex: Male

DRUGS (2)
  1. ABIRATERONE [Suspect]
     Active Substance: ABIRATERONE\ABIRATERONE ACETATE
     Indication: Prostate cancer
     Dosage: FREQUENCY : DAILY;?
     Route: 048
     Dates: start: 202408
  2. PREDNISONE [Suspect]
     Active Substance: PREDNISONE

REACTIONS (3)
  - Oxygen saturation decreased [None]
  - Pulmonary oedema [None]
  - Cardiac failure [None]

NARRATIVE: CASE EVENT DATE: 20241230
